FAERS Safety Report 8729931 (Version 8)
Quarter: 2015Q1

REPORT INFORMATION
  Report Type: Spontaneous
  Country: GB (occurrence: GB)
  Receive Date: 20120817
  Receipt Date: 20150302
  Transmission Date: 20150721
  Serious: Yes (Congenital Anomaly, Other)
  Sender: FDA-Public Use
  Company Number: GB-B.I. PHARMACEUTICALS,INC./RIDGEFIELD-2012-BP-18958BP

PATIENT
  Age: 0 Day
  Sex: Male
  Weight: 3.1 kg

DRUGS (6)
  1. LAMIVUDINE. [Suspect]
     Active Substance: LAMIVUDINE
     Indication: EXPOSURE DURING PREGNANCY
     Route: 064
     Dates: start: 20090101, end: 20100610
  2. VIRAMUNE [Suspect]
     Active Substance: NEVIRAPINE
     Indication: EXPOSURE DURING PREGNANCY
     Route: 064
     Dates: start: 20100610, end: 20100610
  3. ZIDOVUDINE. [Suspect]
     Active Substance: ZIDOVUDINE
     Indication: EXPOSURE DURING PREGNANCY
     Route: 064
     Dates: start: 20090101, end: 20100610
  4. KALETRA [Suspect]
     Active Substance: LOPINAVIR\RITONAVIR
     Indication: EXPOSURE DURING PREGNANCY
     Route: 064
     Dates: start: 20100610
  5. ISENTRESS [Suspect]
     Active Substance: RALTEGRAVIR POTASSIUM
     Indication: HIV INFECTION
     Dosage: 800 MG
     Route: 064
     Dates: start: 20100610
  6. TENOFOVIR [Suspect]
     Active Substance: TENOFOVIR
     Indication: EXPOSURE DURING PREGNANCY
     Route: 064
     Dates: start: 20100610

REACTIONS (2)
  - Volvulus [Unknown]
  - Foetal exposure during pregnancy [Recovered/Resolved]

NARRATIVE: CASE EVENT DATE: 20100629
